FAERS Safety Report 4643624-9 (Version None)
Quarter: 2005Q2

REPORT INFORMATION
  Report Type: 
  Country: None (occurrence: None)
  Receive Date: 20050425
  Receipt Date: 20050415
  Transmission Date: 20051028
  Serious: Yes (Hospitalization)
  Sender: FDA-Public Use
  Company Number: US-AMGEN-US127601

PATIENT
  Age: 91 Year
  Sex: Male
  Weight: 69 kg

DRUGS (9)
  1. PROCRIT [Suspect]
     Indication: RENAL FAILURE CHRONIC
     Dates: start: 20030101
  2. NITROGLYCERIN [Concomitant]
  3. ZOCOR [Concomitant]
  4. FLOMAX [Concomitant]
  5. CARDIZEM [Concomitant]
  6. PREVACID [Concomitant]
  7. TOPROL-XL [Concomitant]
  8. CARDURA [Concomitant]
  9. IRON [Concomitant]

REACTIONS (1)
  - NEPHROLITHIASIS [None]
